FAERS Safety Report 6984568-7 (Version None)
Quarter: 2010Q3

REPORT INFORMATION
  Report Type: 
  Country: None (occurrence: None)
  Receive Date: 20100915
  Receipt Date: 20100910
  Transmission Date: 20110219
  Serious: Yes (Hospitalization)
  Sender: FDA-Public Use
  Company Number: FR-PFIZER INC-2010114552

PATIENT
  Age: 85 Year
  Sex: Female

DRUGS (4)
  1. ZOLOFT [Suspect]
     Indication: DEPRESSION
     Dosage: 1 DF DAILY
     Route: 048
  2. PREVISCAN [Suspect]
     Indication: THROMBOSIS PROPHYLAXIS
     Dosage: 0.5 DF DAILY
     Route: 048
     Dates: start: 20080301, end: 20100127
  3. TOPREC [Suspect]
     Indication: PAIN
     Dosage: 3 DF DAILY
     Route: 048
     Dates: end: 20100127
  4. MOXIFLOXACIN HCL [Suspect]
     Indication: RESPIRATORY TRACT INFECTION
     Dosage: 1 DF DAILY
     Route: 048
     Dates: start: 20100120, end: 20100127

REACTIONS (2)
  - ANAEMIA [None]
  - INTERNATIONAL NORMALISED RATIO INCREASED [None]
